FAERS Safety Report 25275695 (Version 1)
Quarter: 2025Q2

REPORT INFORMATION
  Report Type: Spontaneous
  Country: US (occurrence: US)
  Receive Date: 20250507
  Receipt Date: 20250507
  Transmission Date: 20250717
  Serious: Yes (Death, Life-Threatening, Other)
  Sender: AMGEN
  Company Number: US-AMGEN-USASP2025085242

PATIENT
  Age: 8 Decade
  Sex: Female

DRUGS (11)
  1. PREDNISONE [Suspect]
     Active Substance: PREDNISONE
     Indication: Transplant rejection
     Dosage: 8 MILLIGRAM, QD
     Route: 065
  2. RITUXIMAB [Suspect]
     Active Substance: RITUXIMAB
     Indication: Diffuse large B-cell lymphoma
     Route: 065
  3. CELLCEPT [Concomitant]
     Active Substance: MYCOPHENOLATE MOFETIL
     Indication: Immunosuppression
     Dosage: 150 MILLIGRAM, BID
  4. TACROLIMUS [Concomitant]
     Active Substance: TACROLIMUS
     Dosage: 3 MILLIGRAM, BID
  5. VANCOMYCIN [Concomitant]
     Active Substance: VANCOMYCIN
  6. PIPERACILLIN AND TAZOBACTAM [Concomitant]
     Active Substance: PIPERACILLIN SODIUM\TAZOBACTAM SODIUM
  7. NOREPINEPHRINE [Concomitant]
     Active Substance: NOREPINEPHRINE
  8. VASOPRESSIN [Concomitant]
     Active Substance: VASOPRESSIN
  9. VINCRISTINE [Concomitant]
     Active Substance: VINCRISTINE
  10. CYCLOPHOSPHAMIDE [Concomitant]
     Active Substance: CYCLOPHOSPHAMIDE
  11. EPIRUBICIN [Concomitant]
     Active Substance: EPIRUBICIN

REACTIONS (9)
  - Distributive shock [Fatal]
  - Diffuse large B-cell lymphoma [Fatal]
  - Post transplant lymphoproliferative disorder [Fatal]
  - Acute respiratory distress syndrome [Unknown]
  - Large intestinal obstruction [Unknown]
  - Multiple organ dysfunction syndrome [Unknown]
  - Atrial fibrillation [Unknown]
  - Cytokine release syndrome [Unknown]
  - Therapy non-responder [Unknown]
